FAERS Safety Report 15486195 (Version 2)
Quarter: 2019Q1

REPORT INFORMATION
  Report Type: Spontaneous
  Country: BG (occurrence: BG)
  Receive Date: 20181011
  Receipt Date: 20190121
  Transmission Date: 20190417
  Serious: Yes (Other)
  Sender: FDA-Public Use
  Company Number: BG-ACCORD-062606

PATIENT
  Age: 13 Year
  Sex: Female

DRUGS (5)
  1. METHOTREXATE. [Suspect]
     Active Substance: METHOTREXATE
     Indication: ACUTE LYMPHOCYTIC LEUKAEMIA
     Dosage: HIGH DOSE, 5 G/M2
  2. VINCRISTINE [Suspect]
     Active Substance: VINCRISTINE
     Indication: ACUTE LYMPHOCYTIC LEUKAEMIA
     Dosage: 2X2 MG
  3. CYCLOPHOSPHAMIDE/CYCLOPHOSPHAMIDE MONOHYDRATE [Suspect]
     Active Substance: CYCLOPHOSPHAMIDE
     Indication: ACUTE LYMPHOCYTIC LEUKAEMIA
     Dosage: 200 MG/M2/24H
  4. CYTARABINE/CYTARABINE HYDROCHLORIDE/CYTARABINE OCFOSFATE [Suspect]
     Active Substance: CYTARABINE
     Indication: ACUTE LYMPHOCYTIC LEUKAEMIA
     Dosage: HIGH DOSE, 2 G/M2
  5. DEXAMETHASONE. [Suspect]
     Active Substance: DEXAMETHASONE
     Indication: ACUTE LYMPHOCYTIC LEUKAEMIA
     Dosage: HIGH DOSE, 20 MG/M2/24H

REACTIONS (7)
  - Neuropathy peripheral [Unknown]
  - Acute respiratory failure [Unknown]
  - Bone marrow failure [Unknown]
  - Amblyopia [Unknown]
  - Posterior reversible encephalopathy syndrome [Recovered/Resolved]
  - Electrolyte imbalance [Unknown]
  - Septic shock [Unknown]
